FAERS Safety Report 4981736-0 (Version None)
Quarter: 2006Q2

REPORT INFORMATION
  Report Type: 
  Country: None (occurrence: None)
  Receive Date: 20060420
  Receipt Date: 20060420
  Transmission Date: 20061013
  Serious: Yes (Hospitalization)
  Sender: FDA-Public Use
  Company Number: None

PATIENT
  Age: 61 Year
  Sex: Male
  Weight: 84.369 kg

DRUGS (2)
  1. DOCETAXEL [Suspect]
     Indication: NASOPHARYNGEAL CANCER
     Dosage: 100 MILLIGRAMS   EVERY 21 DAYS  IV DRIP
     Route: 041
     Dates: start: 20060330, end: 20060330
  2. REVLIMID [Suspect]
     Indication: NASOPHARYNGEAL CANCER
     Dosage: 5 MILLIGRAMS   QD X14 Q21DAYS  PO
     Route: 048
     Dates: start: 20060330, end: 20060412

REACTIONS (8)
  - AURICULAR SWELLING [None]
  - EAR PAIN [None]
  - ERYTHEMA [None]
  - INFECTION [None]
  - MASTOID DISORDER [None]
  - OTORRHOEA [None]
  - PAIN [None]
  - PYREXIA [None]
